FAERS Safety Report 7782761-7 (Version None)
Quarter: 2011Q3

REPORT INFORMATION
  Report Type: 
  Country: None (occurrence: None)
  Receive Date: 20110928
  Receipt Date: 20110916
  Transmission Date: 20111222
  Serious: Yes (Hospitalization)
  Sender: FDA-Public Use
  Company Number: US-PFIZER INC-2011219497

PATIENT
  Sex: Male
  Weight: 74.4 kg

DRUGS (4)
  1. COZAAR [Concomitant]
     Dosage: UNK
     Dates: start: 20110701
  2. CAPECITABINE [Suspect]
     Indication: COLORECTAL CANCER
     Dosage: 2000 MG, CYCLIC 14 DAYS ON 7 DAYS OFF
     Dates: start: 20110629, end: 20110914
  3. CALCIUM [Concomitant]
     Dosage: UNK
     Dates: start: 20110701
  4. TEMSIROLIMUS [Suspect]
     Indication: COLORECTAL CANCER
     Dosage: 15 MG, WEEKLY
     Dates: start: 20110629, end: 20110914

REACTIONS (2)
  - ASCITES [None]
  - HYPONATRAEMIA [None]
